FAERS Safety Report 17597891 (Version 1)
Quarter: 2020Q1

REPORT INFORMATION
  Report Type: Report from Study
  Country: US (occurrence: US)
  Receive Date: 20200330
  Receipt Date: 20200330
  Transmission Date: 20200409
  Serious: Yes (Other)
  Sender: FDA-Public Use
  Company Number: US-ROCHE-2570042

PATIENT

DRUGS (20)
  1. THYMOGLOBULIN [Suspect]
     Active Substance: LAPINE T-LYMPHOCYTE IMMUNE GLOBULIN
     Dosage: ON DAY -4.
     Route: 042
  2. GLATIRAMER ACETATE. [Suspect]
     Active Substance: GLATIRAMER ACETATE
     Indication: BONE MARROW CONDITIONING REGIMEN
     Route: 065
  3. FILGRASTIM [Concomitant]
     Active Substance: FILGRASTIM
     Dosage: (5-10 UG/KG/D) WAS STARTED ON DAY +4 AND CONTINUED UNTIL ENGRAFTMENT
     Route: 058
  4. CYCLOPHOSPHAMIDE. [Suspect]
     Active Substance: CYCLOPHOSPHAMIDE
     Indication: BONE MARROW CONDITIONING REGIMEN
     Dosage: 2 G/M2
     Route: 042
  5. ACYCLOVIR [ACICLOVIR] [Concomitant]
     Active Substance: ACYCLOVIR
     Route: 048
  6. SULFAMETHOXAZOLE/TRIMETHOPRIM [Concomitant]
     Active Substance: SULFAMETHOXAZOLE\TRIMETHOPRIM
     Dosage: STARTED AFTER PLATELET ENGRAFTMENT AND CONTINUED FOR 6 MONTHS
     Route: 048
  7. RITUXIMAB. [Suspect]
     Active Substance: RITUXIMAB
     Indication: BONE MARROW CONDITIONING REGIMEN
     Dosage: IN 500 ML 0.9 % NS, ?ON DAYS -6 AND +1.
     Route: 042
  8. CYCLOPHOSPHAMIDE. [Suspect]
     Active Substance: CYCLOPHOSPHAMIDE
     Dosage: ON DAY -5 TO DAY -2
     Route: 042
  9. THYMOGLOBULIN [Suspect]
     Active Substance: LAPINE T-LYMPHOCYTE IMMUNE GLOBULIN
     Dosage: ON DAYS -3, -2, AND -1.
     Route: 042
  10. MESNA. [Suspect]
     Active Substance: MESNA
     Indication: BONE MARROW CONDITIONING REGIMEN
     Dosage: CONTINUED UNTIL 24 HOURS AFTER THE LAST DOSE OF CYCLOPHOSPHAMIDE.
     Route: 042
  11. METHYLPREDNISOLONE. [Suspect]
     Active Substance: METHYLPREDNISOLONE
     Indication: BONE MARROW CONDITIONING REGIMEN
     Dosage: INFUSED 30 MINUTES PRIOR TO RATG INFUSION.
     Route: 042
  12. AZATHIOPRINE. [Suspect]
     Active Substance: AZATHIOPRINE
     Indication: BONE MARROW CONDITIONING REGIMEN
     Route: 065
  13. INTERFERON BETA-1B [Suspect]
     Active Substance: INTERFERON BETA-1B
     Indication: BONE MARROW CONDITIONING REGIMEN
     Route: 065
  14. NATALIZUMAB [Suspect]
     Active Substance: NATALIZUMAB
     Indication: BONE MARROW CONDITIONING REGIMEN
     Route: 065
  15. FINGOLIMOD. [Suspect]
     Active Substance: FINGOLIMOD
     Indication: BONE MARROW CONDITIONING REGIMEN
     Route: 065
  16. PENTAMIDINE [Concomitant]
     Active Substance: PENTAMIDINE
     Dosage: MONTHLY NEBULIZED.?STARTED AFTER PLATELET ENGRAFTMENT AND CONTINUED FOR 6 MONTHS
     Route: 065
  17. IMMUNOGLOBULIN HUMAN NORMAL [Concomitant]
     Active Substance: HUMAN IMMUNOGLOBULIN G
  18. FLUCONAZOLE. [Concomitant]
     Active Substance: FLUCONAZOLE
     Dosage: STARTED ON DAY +2.
     Route: 048
  19. MYCOPHENOLATE MOFETIL. [Suspect]
     Active Substance: MYCOPHENOLATE MOFETIL
     Indication: BONE MARROW CONDITIONING REGIMEN
     Route: 065
  20. THYMOGLOBULIN [Suspect]
     Active Substance: LAPINE T-LYMPHOCYTE IMMUNE GLOBULIN
     Indication: BONE MARROW CONDITIONING REGIMEN
     Dosage: ON DAY -5.
     Route: 042

REACTIONS (14)
  - Pneumonia [Unknown]
  - Myasthenia gravis [Unknown]
  - Upper respiratory tract infection [Unknown]
  - Hypophosphataemia [Unknown]
  - Nausea [Unknown]
  - Vomiting [Unknown]
  - Hypokalaemia [Unknown]
  - Hyperglycaemia [Unknown]
  - Febrile neutropenia [Unknown]
  - Orthostatic hypotension [Unknown]
  - Hypocalcaemia [Unknown]
  - Hypertension [Unknown]
  - Clostridium difficile colitis [Unknown]
  - Diarrhoea [Unknown]
